FAERS Safety Report 25957608 (Version 1)
Quarter: 2025Q4

REPORT INFORMATION
  Report Type: Spontaneous
  Country: CO (occurrence: CO)
  Receive Date: 20251024
  Receipt Date: 20251024
  Transmission Date: 20260118
  Serious: Yes (Other)
  Sender: BIOMARIN
  Company Number: CO-BIOMARINAP-CO-2025-167828

PATIENT
  Sex: Male
  Weight: 35 kg

DRUGS (1)
  1. BRINEURA [Suspect]
     Active Substance: CERLIPONASE ALFA
     Indication: Neuronal ceroid lipofuscinosis
     Dosage: 300 MILLIGRAM, QOW
     Dates: start: 20240430

REACTIONS (8)
  - Spinal disorder [Unknown]
  - Dyskinesia [Unknown]
  - Speech disorder [Unknown]
  - Eating disorder [Unknown]
  - General physical condition abnormal [Unknown]
  - Gait disturbance [Unknown]
  - General physical health deterioration [Unknown]
  - Treatment noncompliance [Unknown]
